FAERS Safety Report 10642653 (Version 1)
Quarter: 2014Q4

REPORT INFORMATION
  Report Type: Spontaneous
  Country: US (occurrence: None)
  Receive Date: 20141208
  Receipt Date: 20141208
  Transmission Date: 20150529
  Serious: No
  Sender: FDA-Public Use
  Company Number: None

PATIENT
  Age: 34 Year
  Sex: Female

DRUGS (1)
  1. KENALOG [Suspect]
     Active Substance: TRIAMCINOLONE ACETONIDE
     Indication: FOOD ALLERGY
     Dosage: INTO THE MUSCLE?ONE INJECTION

REACTIONS (1)
  - Cystitis [None]

NARRATIVE: CASE EVENT DATE: 20141127
